FAERS Safety Report 5018284-8 (Version None)
Quarter: 2006Q2

REPORT INFORMATION
  Report Type: 
  Country: None (occurrence: None)
  Receive Date: 20060530
  Receipt Date: 20060518
  Transmission Date: 20061013
  Serious: Yes (Hospitalization, Other)
  Sender: FDA-Public Use
  Company Number: 2005-06-1609

PATIENT
  Age: 50 Year
  Sex: Female

DRUGS (10)
  1. PEG-INTRON [Suspect]
     Indication: HEPATITIS C
     Dosage: 100 MCG QW; SUBCUTANEOUS
     Route: 058
     Dates: start: 20040524, end: 20050424
  2. REBETOL [Suspect]
     Indication: HEPATITIS C
     Dosage: 800 MG QD; ORAL
     Route: 048
     Dates: start: 20040524, end: 20050424
  3. CIPRAMIL 40 MG QD [Concomitant]
  4. DISTALGIC FOR (=ALGOPHENE) [Concomitant]
  5. BURINEX [Concomitant]
  6. PROTHIADEN 25 MG QD [Concomitant]
  7. CLOZAN FOR IF NEEDED [Concomitant]
  8. ACETAMINOPHEN [Concomitant]
  9. ROMILAR SYRUP FOR IF NEEDED [Concomitant]
  10. LYSANXIA FOR IF NEEDED [Concomitant]

REACTIONS (7)
  - ANXIETY [None]
  - CHRONIC FATIGUE SYNDROME [None]
  - DEPRESSION [None]
  - DISEASE RECURRENCE [None]
  - PARTNER STRESS [None]
  - PERSONALITY DISORDER [None]
  - WEIGHT DECREASED [None]
